FAERS Safety Report 9059256 (Version 1)
Quarter: 2013Q1

REPORT INFORMATION
  Report Type: Spontaneous
  Country: FR (occurrence: FR)
  Receive Date: 20130211
  Receipt Date: 20130211
  Transmission Date: 20140127
  Serious: Yes (Other)
  Sender: FDA-Public Use
  Company Number: FR-ROCHE-1183139

PATIENT
  Sex: Female

DRUGS (3)
  1. AVASTIN [Suspect]
     Indication: OVARIAN CANCER
     Route: 065
  2. TAXOL [Concomitant]
     Route: 065
  3. CARBOPLATIN [Concomitant]
     Route: 065

REACTIONS (1)
  - Transaminases increased [Recovered/Resolved]
